FAERS Safety Report 24900983 (Version 3)
Quarter: 2025Q1

REPORT INFORMATION
  Report Type: Spontaneous
  Country: US (occurrence: US)
  Receive Date: 20250129
  Receipt Date: 20250221
  Transmission Date: 20250409
  Serious: Yes (Other)
  Sender: PFIZER
  Company Number: US-PFIZER INC-PV202500011711

PATIENT
  Age: 70 Year
  Sex: Female

DRUGS (2)
  1. IBRANCE [Suspect]
     Active Substance: PALBOCICLIB
  2. ANASTROZOLE [Suspect]
     Active Substance: ANASTROZOLE

REACTIONS (11)
  - Renal impairment [Unknown]
  - Flatulence [Not Recovered/Not Resolved]
  - Nausea [Not Recovered/Not Resolved]
  - Feeding disorder [Not Recovered/Not Resolved]
  - Diarrhoea [Not Recovered/Not Resolved]
  - Constipation [Unknown]
  - Abdominal pain upper [Unknown]
  - Vomiting [Unknown]
  - Abdominal discomfort [Not Recovered/Not Resolved]
  - Haemorrhoids [Unknown]
  - Anaemia [Unknown]
